FAERS Safety Report 4410835-7 (Version None)
Quarter: 2004Q3

REPORT INFORMATION
  Report Type: 
  Country: None (occurrence: None)
  Receive Date: 20040726
  Receipt Date: 20040712
  Transmission Date: 20050211
  Serious: Yes (Death)
  Sender: FDA-Public Use
  Company Number: JRFUSA1999002673

PATIENT
  Age: 17 Year
  Sex: Female
  Weight: 66 kg

DRUGS (4)
  1. DURAGESIC [Suspect]
     Indication: POST PROCEDURAL PAIN
     Dosage: 100 UG/HR 1 IN 72 HOUR TRANSDERMAL
     Route: 062
     Dates: start: 19981017
  2. DARVON [Suspect]
     Indication: PAIN
     Dosage: ORAL
     Route: 048
  3. PROMETHAZINE [Concomitant]
  4. DEMEROL (TABLETS)(PETHIDINE HYDROCHLORIDE) [Concomitant]

REACTIONS (8)
  - BRAIN OEDEMA [None]
  - COMA [None]
  - DRUG SCREEN POSITIVE [None]
  - OVERDOSE [None]
  - PRURITUS [None]
  - PULSE ABSENT [None]
  - RESPIRATORY ARREST [None]
  - URTICARIA [None]
